FAERS Safety Report 8545802-5 (Version None)
Quarter: 2012Q3

REPORT INFORMATION
  Report Type: 
  Country: None (occurrence: None)
  Receive Date: 20120727
  Receipt Date: 20120719
  Transmission Date: 20120928
  Serious: Yes (Other)
  Sender: FDA-Public Use
  Company Number: CN-BAXTER-2012BAX012437

PATIENT
  Sex: Male
  Weight: 95 kg

DRUGS (2)
  1. CEPHRADINE [Suspect]
     Dates: start: 20110701, end: 20110701
  2. SODIUM CHLORIDE INJ [Suspect]
     Indication: TONSILLITIS
     Route: 042
     Dates: start: 20110701, end: 20110701

REACTIONS (3)
  - SYNCOPE [None]
  - MALAISE [None]
  - HYPERHIDROSIS [None]
